FAERS Safety Report 7939618-8 (Version None)
Quarter: 2011Q4

REPORT INFORMATION
  Report Type: 
  Country: None (occurrence: None)
  Receive Date: 20111125
  Receipt Date: 20111114
  Transmission Date: 20120403
  Serious: Yes (Hospitalization)
  Sender: FDA-Public Use
  Company Number: PHHO2011US019236

PATIENT
  Sex: Male

DRUGS (11)
  1. AFINITOR [Suspect]
     Indication: METASTATIC CARCINOID TUMOUR
     Dosage: 10 MG, QD
     Dates: start: 20100903, end: 20111101
  2. OXYCONTIN [Concomitant]
  3. SOM230 [Suspect]
     Indication: METASTATIC CARCINOID TUMOUR
     Dosage: 60 MG, QMO
     Route: 030
     Dates: start: 20100930, end: 20111027
  4. COMPAZINE [Concomitant]
  5. DILAUDID [Concomitant]
  6. LOMOTIL [Concomitant]
  7. OPIUM TINCTURE [Concomitant]
  8. MEGACE [Concomitant]
  9. OMEPRAZOLE [Concomitant]
  10. CREON [Concomitant]
  11. ATIVAN [Concomitant]

REACTIONS (1)
  - ARTHRITIS BACTERIAL [None]
